FAERS Safety Report 7592919-8 (Version None)
Quarter: 2011Q2

REPORT INFORMATION
  Report Type: 
  Country: None (occurrence: None)
  Receive Date: 20110628
  Receipt Date: 20110621
  Transmission Date: 20111010
  Serious: Yes (Other)
  Sender: FDA-Public Use
  Company Number: CIP11001383

PATIENT
  Age: 88 Year
  Sex: Female

DRUGS (9)
  1. SENNOSIDE /00571901/ (SENNOSIDE A+B) [Concomitant]
  2. ONEALFA (ALFACALCIDOL) [Concomitant]
  3. TENORMIN [Concomitant]
  4. MUCOSTA (REBAMIPIDE) [Concomitant]
  5. METHYCOBAL /00324901/ (MECOBALAMIN) [Concomitant]
  6. ISOSORBIDE MONONITRATE [Concomitant]
  7. RISEDRONATE SODIUM [Suspect]
     Indication: OSTEOPOROSIS
     Dosage: 17.5 MG ONCE WEEKLY, ORAL
     Route: 048
     Dates: start: 20100915, end: 20110601
  8. CRESTOR [Concomitant]
  9. ETODOLAC [Concomitant]

REACTIONS (3)
  - DYSPNOEA [None]
  - INTERSTITIAL LUNG DISEASE [None]
  - DIZZINESS [None]
